FAERS Safety Report 8343262-0 (Version None)
Quarter: 2012Q2

REPORT INFORMATION
  Report Type: 
  Country: None (occurrence: None)
  Receive Date: 20120508
  Receipt Date: 20120430
  Transmission Date: 20120825
  Serious: Yes (Hospitalization)
  Sender: FDA-Public Use
  Company Number: US-BAYER-US-2006-012307

PATIENT
  Sex: Female

DRUGS (2)
  1. YAZ [Suspect]
     Dosage: UNK
     Dates: start: 20050901
  2. YASMIN [Suspect]
     Dosage: UNK
     Dates: start: 20050901

REACTIONS (6)
  - DEEP VEIN THROMBOSIS [None]
  - CORONARY ARTERY EMBOLISM [None]
  - PULMONARY EMBOLISM [None]
  - PAIN [None]
  - INJURY [None]
  - VOMITING [None]
